FAERS Safety Report 6950252-9 (Version None)
Quarter: 2010Q3

REPORT INFORMATION
  Report Type: 
  Country: None (occurrence: None)
  Receive Date: 20100828
  Receipt Date: 20100201
  Transmission Date: 20110219
  Serious: No
  Sender: FDA-Public Use
  Company Number: US-ABBOTT-10P-163-0623841-00

PATIENT
  Sex: Female
  Weight: 81.72 kg

DRUGS (5)
  1. NIASPAN [Suspect]
     Indication: BLOOD CHOLESTEROL INCREASED
     Dosage: TOOK ONLY FOR TWO WEEKS
     Dates: start: 20080101, end: 20080101
  2. LIPITOR [Concomitant]
     Indication: BLOOD CHOLESTEROL INCREASED
  3. PLAVIX [Concomitant]
     Indication: TRANSIENT ISCHAEMIC ATTACK
  4. SYNTHROID [Concomitant]
     Indication: HYPOTHYROIDISM
  5. DIOVAN [Concomitant]
     Indication: HYPERTENSION
     Dosage: 80/12.5

REACTIONS (2)
  - FLUSHING [None]
  - SENSORY DISTURBANCE [None]
